FAERS Safety Report 9360765 (Version 1)
Quarter: 2013Q2

REPORT INFORMATION
  Report Type: Spontaneous
  Country: JP (occurrence: JP)
  Receive Date: 20130621
  Receipt Date: 20130621
  Transmission Date: 20140414
  Serious: Yes (Death, Hospitalization)
  Sender: FDA-Public Use
  Company Number: JP-BAYER-2013-072865

PATIENT
  Age: 65 Year
  Sex: Male
  Weight: 45 kg

DRUGS (11)
  1. STIVARGA [Suspect]
     Indication: COLORECTAL CANCER
     Dosage: 160 MG, QD
     Route: 048
     Dates: start: 20130530, end: 20130603
  2. WARFARIN [Suspect]
     Dosage: UNK
     Route: 048
     Dates: end: 20130605
  3. PICIBANIL [Concomitant]
     Indication: PLEURODESIS
     Dosage: UNK
     Route: 042
     Dates: start: 20130527, end: 20130527
  4. LENDORMIN [Concomitant]
     Dosage: UNK
     Route: 048
     Dates: end: 20130531
  5. ROZEREM [Concomitant]
     Dosage: UNK
     Route: 048
     Dates: end: 20130608
  6. HIRUDOID [Concomitant]
     Dosage: UNK
     Route: 061
  7. GLUCOSE [Concomitant]
     Dosage: UNK
  8. CELECOXIB [Concomitant]
     Indication: PAIN MANAGEMENT
     Dosage: UNK
     Route: 048
     Dates: end: 20130609
  9. EVAMYL [Concomitant]
     Dosage: UNK
     Route: 048
     Dates: end: 20130608
  10. ZYLORIC [Concomitant]
     Indication: BLOOD URIC ACID INCREASED
     Dosage: UNK
     Route: 048
     Dates: end: 20130609
  11. TAKEPRON [Concomitant]
     Dosage: UNK
     Route: 048
     Dates: end: 20130609

REACTIONS (2)
  - Hepatic function abnormal [Fatal]
  - Colon cancer [Fatal]
